FAERS Safety Report 4339026-5 (Version None)
Quarter: 2004Q2

REPORT INFORMATION
  Report Type: 
  Country: None (occurrence: None)
  Receive Date: 20040412
  Receipt Date: 20040325
  Transmission Date: 20050107
  Serious: Yes (Hospitalization)
  Sender: FDA-Public Use
  Company Number: 176698

PATIENT
  Age: 61 Year
  Sex: Male
  Weight: 110.6777 kg

DRUGS (2)
  1. AVONEX [Suspect]
     Indication: MULTIPLE SCLEROSIS
     Dosage: 30 MCG QW IM
     Route: 030
     Dates: start: 19960101
  2. LIPITOR [Concomitant]

REACTIONS (4)
  - ABASIA [None]
  - CONFUSIONAL STATE [None]
  - MUSCLE DISORDER [None]
  - RENAL DISORDER [None]
